FAERS Safety Report 8635126 (Version 5)
Quarter: 2013Q2

REPORT INFORMATION
  Report Type: Report from Study
  Country: GB (occurrence: GB)
  Receive Date: 20120626
  Receipt Date: 20130627
  Transmission Date: 20140414
  Serious: Yes (Hospitalization)
  Sender: FDA-Public Use
  Company Number: GB-B.I. PHARMACEUTICALS,INC./RIDGEFIELD-2012-UK-00698UK

PATIENT
  Age: 65 Year
  Sex: Male
  Weight: 103.7 kg

DRUGS (23)
  1. TIOTROPIUM BROMIDE [Suspect]
     Indication: CHRONIC OBSTRUCTIVE PULMONARY DISEASE
     Dosage: 18 MCG
     Route: 055
     Dates: start: 20111109, end: 20120703
  2. SALMETEROL [Suspect]
     Indication: CHRONIC OBSTRUCTIVE PULMONARY DISEASE
     Dosage: 100 MCG
     Route: 055
     Dates: start: 20111109, end: 20120703
  3. SPIRIVA [Concomitant]
     Indication: CHRONIC OBSTRUCTIVE PULMONARY DISEASE
     Dosage: 18 MCG
     Route: 055
     Dates: end: 20111107
  4. VENTOLIN [Concomitant]
     Indication: CHRONIC OBSTRUCTIVE PULMONARY DISEASE
     Dosage: 200 MCG
     Route: 055
     Dates: end: 20111107
  5. SERETIDE [Concomitant]
     Indication: CHRONIC OBSTRUCTIVE PULMONARY DISEASE
     Dosage: 1000 MCG
     Route: 055
     Dates: end: 20111108
  6. CARBOCISTEINE [Concomitant]
     Indication: CHRONIC OBSTRUCTIVE PULMONARY DISEASE
     Dosage: 1500 MG
     Route: 048
     Dates: end: 20110913
  7. METFORMIN [Concomitant]
     Indication: DIABETES MELLITUS
     Dosage: 1500 MG
     Route: 048
  8. QUININE SULPHATE [Concomitant]
     Indication: MUSCLE SPASMS
     Dosage: 300 MG
     Route: 048
     Dates: end: 20120606
  9. CALCICHEW D3 [Concomitant]
     Indication: BONE DENSITY ABNORMAL
     Dosage: 2.5 G
     Route: 048
     Dates: end: 20120606
  10. CAPSAICIN [Concomitant]
     Indication: DIABETIC NEUROPATHY
     Dosage: 0.075% TDS
     Route: 061
  11. AMYTRIPTYLLINE [Concomitant]
     Indication: PAIN
     Dosage: 10 MG
     Route: 048
     Dates: start: 20110913, end: 20110914
  12. SILDENAFIL [Concomitant]
     Indication: ERECTILE DYSFUNCTION
     Dosage: 10 MG
     Route: 048
  13. GLYCLAZIDE [Concomitant]
     Indication: DIABETES MELLITUS
     Dosage: 320 MG
     Route: 048
  14. METFORMIN MR [Concomitant]
     Indication: DIABETES MELLITUS
     Dosage: 500 MG
     Route: 048
     Dates: start: 20110913
  15. FUROSEMIDE [Concomitant]
     Indication: FLUID RETENTION
     Dosage: 40 MG
     Route: 048
     Dates: end: 20120606
  16. PREDNISOLONE [Concomitant]
     Indication: CHRONIC OBSTRUCTIVE PULMONARY DISEASE
     Dosage: 1 MG
     Route: 048
     Dates: end: 20120614
  17. PARACETAMOL [Concomitant]
     Indication: PAIN
     Dosage: 1 G
     Route: 048
  18. NEXIUM [Concomitant]
     Indication: GASTRITIS
     Dosage: 20 MG
     Route: 048
     Dates: start: 20120210, end: 20120606
  19. AMOXYCILLIN [Concomitant]
     Indication: CHRONIC OBSTRUCTIVE PULMONARY DISEASE
     Dosage: 1500 MG
     Route: 048
     Dates: start: 20120412, end: 20120419
  20. CLARITHROMYCIN [Concomitant]
     Indication: CHRONIC OBSTRUCTIVE PULMONARY DISEASE
     Dosage: 1 G
     Route: 048
     Dates: start: 20120412, end: 20120419
  21. SITAGLIPTIN [Concomitant]
     Indication: DIABETES MELLITUS
     Dosage: 100 MG
     Route: 048
     Dates: start: 20120416
  22. IBUPROFEN [Concomitant]
     Indication: TEMPORAL ARTERITIS
     Dosage: 1200 MG
     Route: 048
     Dates: start: 20120409, end: 20120421
  23. SALBUTAMOL [Concomitant]
     Indication: CHRONIC OBSTRUCTIVE PULMONARY DISEASE
     Dosage: 200 MCG
     Route: 055
     Dates: start: 20111109

REACTIONS (3)
  - Laceration [Recovered/Resolved]
  - Bronchitis chemical [Recovered/Resolved]
  - Chronic obstructive pulmonary disease [Recovered/Resolved]
